FAERS Safety Report 6736066-3 (Version None)
Quarter: 2010Q2

REPORT INFORMATION
  Report Type: 
  Country: None (occurrence: None)
  Receive Date: 20100521
  Receipt Date: 20100510
  Transmission Date: 20101027
  Serious: Yes (Other)
  Sender: FDA-Public Use
  Company Number: JP-PFIZER INC-2010054141

PATIENT

DRUGS (3)
  1. VFEND [Suspect]
     Route: 042
  2. GARENOXACIN MESILATE [Concomitant]
  3. MEROPEN [Concomitant]

REACTIONS (4)
  - BALANCE DISORDER [None]
  - BRADYKINESIA [None]
  - DISORIENTATION [None]
  - VISION BLURRED [None]
